FAERS Safety Report 14838332 (Version 3)
Quarter: 2019Q2

REPORT INFORMATION
  Report Type: Spontaneous
  Country: US (occurrence: US)
  Receive Date: 20180502
  Receipt Date: 20190418
  Transmission Date: 20190711
  Serious: Yes (Other)
  Sender: FDA-Public Use
  Company Number: US-GLAXOSMITHKLINE-US2018GSK076817

PATIENT
  Sex: Female

DRUGS (2)
  1. PREVACID [Suspect]
     Active Substance: LANSOPRAZOLE
     Indication: PRODUCT USED FOR UNKNOWN INDICATION
     Dosage: UNK
     Route: 065
  2. PREVACID [Suspect]
     Active Substance: LANSOPRAZOLE
     Indication: PRODUCT USED FOR UNKNOWN INDICATION
     Dosage: UNK
     Route: 065

REACTIONS (15)
  - Acute kidney injury [Unknown]
  - Dialysis [Unknown]
  - Renal failure [Unknown]
  - End stage renal disease [Unknown]
  - Nephrotic syndrome [Unknown]
  - Haematuria [Unknown]
  - Diabetic nephropathy [Unknown]
  - Renal pain [Unknown]
  - Proteinuria [Unknown]
  - Renal injury [Unknown]
  - Renal artery stenosis [Unknown]
  - Hypertensive nephropathy [Unknown]
  - Chronic kidney disease [Unknown]
  - Renal impairment [Unknown]
  - Renal atrophy [Unknown]
